FAERS Safety Report 15773235 (Version 1)
Quarter: 2018Q4

REPORT INFORMATION
  Report Type: Spontaneous
  Country: US (occurrence: US)
  Receive Date: 20181228
  Receipt Date: 20181228
  Transmission Date: 20190205
  Serious: Yes (Hospitalization, Other)
  Sender: FDA-Public Use
  Company Number: US-BAUSCH-BL-2018-035932

PATIENT
  Age: 6 Decade
  Sex: Male

DRUGS (5)
  1. ACITRETIN. [Suspect]
     Active Substance: ACITRETIN
     Indication: KERATOSIS FOLLICULAR
     Route: 065
  2. 5-FLUOROURACIL [Suspect]
     Active Substance: FLUOROURACIL
     Indication: KERATOSIS FOLLICULAR
     Route: 065
  3. HYDROXYCHLOROQUINE [Suspect]
     Active Substance: HYDROXYCHLOROQUINE
     Indication: KERATOSIS FOLLICULAR
     Route: 065
  4. ISOTRETINOIN. [Suspect]
     Active Substance: ISOTRETINOIN
     Indication: KERATOSIS FOLLICULAR
     Route: 065
  5. MYCOPHENOLATE MOFETIL. [Suspect]
     Active Substance: MYCOPHENOLATE MOFETIL
     Indication: KERATOSIS FOLLICULAR
     Route: 065

REACTIONS (3)
  - Herpes simplex [Recovering/Resolving]
  - Staphylococcal infection [Recovering/Resolving]
  - Drug effect incomplete [Unknown]
